FAERS Safety Report 20440075 (Version 6)
Quarter: 2022Q3

REPORT INFORMATION
  Report Type: Report from Study
  Country: US (occurrence: None)
  Receive Date: 20220207
  Receipt Date: 20220928
  Transmission Date: 20221027
  Serious: Yes (Death, Life-Threatening)
  Sender: FDA-Public Use
  Company Number: US-ROCHE-3009070

PATIENT
  Age: 79 Year
  Sex: Female

DRUGS (38)
  1. TENECTEPLASE [Suspect]
     Active Substance: TENECTEPLASE
     Indication: Thrombolysis
     Dosage: ON 21/JAN/2022, RECEIVED MOST RECENT DOSE OF BLINDED TENECTEPLASE PRIOR TO THE EVENT AT 6:18 PM
     Route: 042
     Dates: start: 20220121
  2. MORPHINE [Concomitant]
     Active Substance: MORPHINE
     Indication: Pain prophylaxis
     Route: 042
     Dates: start: 20220125
  3. GLYCOPYRROLATE [Concomitant]
     Active Substance: GLYCOPYRROLATE
     Indication: Palliative care
     Route: 042
     Dates: start: 20220124, end: 20220127
  4. GLYCOPYRROLATE [Concomitant]
     Active Substance: GLYCOPYRROLATE
     Route: 042
     Dates: start: 20220127, end: 20220127
  5. HYDROMORPHONE [Concomitant]
     Active Substance: HYDROMORPHONE
     Indication: Palliative care
     Route: 042
     Dates: start: 20220124, end: 20220125
  6. LORAZEPAM [Concomitant]
     Active Substance: LORAZEPAM
     Indication: Palliative care
     Route: 042
     Dates: start: 20220124
  7. ACETAMINOPHEN [Concomitant]
     Active Substance: ACETAMINOPHEN
     Indication: Pain prophylaxis
     Route: 045
     Dates: start: 20220124, end: 20220124
  8. SODIUM CHLORIDE [Concomitant]
     Active Substance: SODIUM CHLORIDE
     Route: 042
     Dates: start: 20220124, end: 20220124
  9. METOPROLOL TARTRATE [Concomitant]
     Active Substance: METOPROLOL TARTRATE
     Indication: Hypertension
     Dates: start: 20220124, end: 20220124
  10. METOPROLOL TARTRATE [Concomitant]
     Active Substance: METOPROLOL TARTRATE
     Dates: start: 20220122, end: 20220122
  11. POTASSIUM CHLORIDE [Concomitant]
     Active Substance: POTASSIUM CHLORIDE
     Indication: Blood potassium decreased
     Dosage: 40 OTHER
     Route: 048
     Dates: start: 20220124, end: 20220124
  12. POTASSIUM CHLORIDE [Concomitant]
     Active Substance: POTASSIUM CHLORIDE
     Dosage: 20 OTHER
     Route: 042
     Dates: start: 20220122, end: 20220122
  13. LANSOPRAZOLE [Concomitant]
     Active Substance: LANSOPRAZOLE
     Dates: start: 20220123, end: 20220124
  14. LANSOPRAZOLE [Concomitant]
     Active Substance: LANSOPRAZOLE
     Dates: start: 20220123, end: 20220123
  15. CARBOXYMETHYLCELLULOSE SODIUM [Concomitant]
     Active Substance: CARBOXYMETHYLCELLULOSE SODIUM
     Route: 047
     Dates: start: 20220121, end: 20220127
  16. NICARDIPINE [Concomitant]
     Active Substance: NICARDIPINE
     Indication: Hypertension
     Dosage: 40 OTHER
     Dates: start: 20220121, end: 20220122
  17. ONDANSETRON [Concomitant]
     Active Substance: ONDANSETRON
     Indication: Prophylaxis of nausea and vomiting
     Route: 042
     Dates: start: 20220121, end: 20220124
  18. PROCHLORPERAZINE [Concomitant]
     Active Substance: PROCHLORPERAZINE
     Indication: Prophylaxis of nausea and vomiting
     Route: 042
     Dates: start: 20220121, end: 20220124
  19. CEFAZOLIN [Concomitant]
     Active Substance: CEFAZOLIN
     Indication: Infection prophylaxis
     Route: 042
     Dates: start: 20220121, end: 20220121
  20. CEFAZOLIN [Concomitant]
     Active Substance: CEFAZOLIN
     Indication: Preventive surgery
  21. IOHEXOL [Concomitant]
     Active Substance: IOHEXOL
     Route: 042
     Dates: start: 20220121, end: 20220121
  22. PERFLUTREN [Concomitant]
     Active Substance: PERFLUTREN
     Route: 042
     Dates: start: 20220123, end: 20220123
  23. FENTANYL [Concomitant]
     Active Substance: FENTANYL
     Indication: Palliative care
     Route: 042
     Dates: start: 20220125, end: 20220127
  24. ATORVASTATIN [Concomitant]
     Active Substance: ATORVASTATIN
     Dates: start: 20220123, end: 20220124
  25. ATORVASTATIN [Concomitant]
     Active Substance: ATORVASTATIN
     Route: 048
     Dates: start: 20220122, end: 20220122
  26. GADOBUTROL [Concomitant]
     Active Substance: GADOBUTROL
     Route: 042
     Dates: start: 20220122, end: 20220122
  27. DEXMEDETOMIDINE [Concomitant]
     Active Substance: DEXMEDETOMIDINE
     Indication: Sedation
     Dosage: 200 OTHER
     Route: 042
     Dates: start: 20220122, end: 20220124
  28. FOLIC ACID [Concomitant]
     Active Substance: FOLIC ACID
     Dates: start: 20220122, end: 20220124
  29. METOPROLOL [Concomitant]
     Active Substance: METOPROLOL
     Route: 042
     Dates: start: 20220122, end: 20220122
  30. CHLORHEXIDINE [Concomitant]
     Active Substance: CHLORHEXIDINE
     Route: 048
     Dates: start: 20220122, end: 20220122
  31. FERROUS SULFATE [Concomitant]
     Active Substance: FERROUS SULFATE
     Dates: start: 20220122, end: 20220124
  32. PANTOPRAZOLE [Concomitant]
     Active Substance: PANTOPRAZOLE
     Dates: start: 20220122, end: 20220122
  33. COCAINE [Concomitant]
     Active Substance: COCAINE
  34. POTASSIUM PHOSPHATES [Concomitant]
     Active Substance: POTASSIUM PHOSPHATE, DIBASIC\POTASSIUM PHOSPHATE, MONOBASIC
     Indication: Renal lithiasis prophylaxis
     Dosage: 2 OTHER
     Dates: start: 20220124, end: 20220124
  35. TRANDATE [Concomitant]
     Active Substance: LABETALOL HYDROCHLORIDE
     Route: 042
     Dates: start: 20220121, end: 20220124
  36. TRANDATE [Concomitant]
     Active Substance: LABETALOL HYDROCHLORIDE
     Route: 042
     Dates: start: 20220121, end: 20220121
  37. ATROPINE [Concomitant]
     Active Substance: ATROPINE
     Dosage: 4 OTHER
     Route: 060
     Dates: start: 20220126, end: 20220127
  38. BREVIBLOC [Concomitant]
     Active Substance: ESMOLOL HYDROCHLORIDE
     Indication: Preventive surgery
     Route: 042
     Dates: start: 20220121, end: 20220121

REACTIONS (3)
  - Subarachnoid haemorrhage [Not Recovered/Not Resolved]
  - Brain oedema [Fatal]
  - Cerebral artery perforation [Recovered/Resolved with Sequelae]

NARRATIVE: CASE EVENT DATE: 20220121
